FAERS Safety Report 17863395 (Version 1)
Quarter: 2020Q2

REPORT INFORMATION
  Report Type: Spontaneous
  Country: PL (occurrence: PL)
  Receive Date: 20200605
  Receipt Date: 20200605
  Transmission Date: 20200714
  Serious: Yes (Other)
  Sender: FDA-Public Use
  Company Number: PL-AMGEN-POLSP2020087302

PATIENT
  Age: 70 Year
  Sex: Male

DRUGS (5)
  1. OXALIPLATIN. [Concomitant]
     Active Substance: OXALIPLATIN
     Indication: COLON CANCER METASTATIC
     Dosage: 85 MILLIGRAM/SQ. METER, Q2WK
     Route: 042
     Dates: start: 20190528
  2. PANITUMUMAB [Suspect]
     Active Substance: PANITUMUMAB
     Indication: COLON CANCER METASTATIC
     Dosage: 6 MILLIGRAM/KILOGRAM, Q2WK
     Route: 042
     Dates: start: 20190528
  3. 5-FU [FLUOROURACIL] [Concomitant]
     Active Substance: FLUOROURACIL
     Indication: COLON CANCER METASTATIC
     Dosage: 400 MILLIGRAM/SQ. METER, Q2WK
     Route: 040
     Dates: start: 20190528
  4. LEVOFOLIC [Concomitant]
     Active Substance: LEUCOVORIN
     Indication: COLON CANCER METASTATIC
     Dosage: 100 MILLIGRAM/SQ. METER
     Dates: start: 20190528
  5. 5-FU [FLUOROURACIL] [Concomitant]
     Active Substance: FLUOROURACIL
     Dosage: 600 MILLIGRAM/SQ. METER
     Route: 042
     Dates: start: 20190528

REACTIONS (3)
  - Therapeutic product effect incomplete [Unknown]
  - Polyneuropathy [Unknown]
  - Rash [Unknown]

NARRATIVE: CASE EVENT DATE: 201906
